FAERS Safety Report 16510277 (Version 1)
Quarter: 2019Q3

REPORT INFORMATION
  Report Type: Spontaneous
  Country: US (occurrence: US)
  Receive Date: 20190521
  Receipt Date: 20190521
  Transmission Date: 20191004
  Serious: No
  Sender: FDA-Public Use
  Company Number: None

PATIENT
  Age: 52 Year
  Sex: Female
  Weight: 70.31 kg

DRUGS (2)
  1. TALTZ [Suspect]
     Active Substance: IXEKIZUMAB
     Indication: PSORIASIS
     Dosage: ?          OTHER FREQUENCY:EVERY 4 WKS ;?
     Route: 058
     Dates: start: 201710
  2. TALTZ [Suspect]
     Active Substance: IXEKIZUMAB
     Indication: JUVENILE PSORIATIC ARTHRITIS
     Dosage: ?          OTHER FREQUENCY:EVERY 4 WKS ;?
     Route: 058
     Dates: start: 201710

REACTIONS (1)
  - Blood glucose decreased [None]
